FAERS Safety Report 25438444 (Version 1)
Quarter: 2025Q2

REPORT INFORMATION
  Report Type: Spontaneous
  Country: ES (occurrence: ES)
  Receive Date: 20250616
  Receipt Date: 20250616
  Transmission Date: 20250717
  Serious: Yes (Hospitalization, Other)
  Sender: AIPING PHARMACEUTICAL
  Company Number: ES-AIPING-2025AILIT00073

PATIENT
  Age: 51 Year
  Sex: Male

DRUGS (1)
  1. CIPROFLOXACIN [Suspect]
     Active Substance: CIPROFLOXACIN
     Indication: Bronchitis
     Route: 065

REACTIONS (2)
  - Drug reaction with eosinophilia and systemic symptoms [Unknown]
  - Drug-induced liver injury [Unknown]
